FAERS Safety Report 5315264-X (Version None)
Quarter: 2007Q2

REPORT INFORMATION
  Report Type: 
  Country: None (occurrence: None)
  Receive Date: 20070426
  Receipt Date: 20070418
  Transmission Date: 20071010
  Serious: Yes (Death, Life-Threatening, Hospitalization, Other)
  Sender: FDA-Public Use
  Company Number: 430007N07JPN

PATIENT
  Age: 51 Year
  Sex: Male

DRUGS (15)
  1. NOVANTRONE [Suspect]
     Indication: ACUTE MYELOID LEUKAEMIA RECURRENT
     Dosage: 12 MG, UNKNOWN, INTRAVENOUS (NOT OTHERWISE SPECIFIED)
     Route: 042
     Dates: start: 20060906, end: 20060908
  2. MYLOTARG [Suspect]
     Indication: ACUTE MYELOID LEUKAEMIA RECURRENT
     Dosage: 6 MG/M2, 1 IN 1 DAYS, INTRAVENOUS (NOT OTHERWISE SPECIFIED)
     Route: 042
     Dates: start: 20060905, end: 20060905
  3. MYLOTARG [Suspect]
     Indication: ACUTE MYELOID LEUKAEMIA RECURRENT
     Dosage: 6 MG/M2, 1 IN 1 DAYS, INTRAVENOUS (NOT OTHERWISE SPECIFIED)
     Route: 042
     Dates: start: 20060919, end: 20060919
  4. CYTARABINE [Concomitant]
  5. POLYMYXIN B SULFATE [Concomitant]
  6. FAMOTIDINE [Concomitant]
  7. BACTRIM [Concomitant]
  8. ALLOPURINOL [Concomitant]
  9. VORICONAZOLE [Concomitant]
  10. TEPRENONE [Concomitant]
  11. GRANISETRON [Concomitant]
  12. OXYCODONE HCL [Concomitant]
  13. PENTAZOCINE LACTATE [Concomitant]
  14. DEXPANTHENOL [Concomitant]
  15. MIDAZOLAM HCL [Concomitant]

REACTIONS (24)
  - ACUTE RESPIRATORY DISTRESS SYNDROME [None]
  - ANAEMIA [None]
  - DISSEMINATED INTRAVASCULAR COAGULATION [None]
  - DRUG INEFFECTIVE [None]
  - DYSPHAGIA [None]
  - DYSPHASIA [None]
  - EATING DISORDER [None]
  - HEPATIC FUNCTION ABNORMAL [None]
  - HERPES SIMPLEX [None]
  - HYPOALBUMINAEMIA [None]
  - HYPOKALAEMIA [None]
  - LEUKAEMIC INFILTRATION PULMONARY [None]
  - LUNG NEOPLASM [None]
  - MOUTH HAEMORRHAGE [None]
  - NEUTROPHIL COUNT DECREASED [None]
  - ORAL HERPES [None]
  - OTITIS EXTERNA [None]
  - PEAU D'ORANGE [None]
  - PNEUMONIA [None]
  - PULMONARY CONGESTION [None]
  - RENAL IMPAIRMENT [None]
  - SEPSIS [None]
  - SEPTIC SHOCK [None]
  - STOMATITIS [None]
